FAERS Safety Report 16832805 (Version 3)
Quarter: 2019Q4

REPORT INFORMATION
  Report Type: Spontaneous
  Country: JP (occurrence: JP)
  Receive Date: 20190920
  Receipt Date: 20191204
  Transmission Date: 20200122
  Serious: Yes (Hospitalization, Other)
  Sender: FDA-Public Use
  Company Number: JP-ACTELION-A-CH2019-195653

PATIENT
  Age: 24 Year
  Sex: Female
  Weight: 53 kg

DRUGS (11)
  1. EPOPROSTENOL ACT [Suspect]
     Active Substance: EPOPROSTENOL
     Indication: PULMONARY ARTERIAL HYPERTENSION
     Dosage: 3.9 NG/KG, PER MIN
     Route: 042
  2. SEVOFLURANE. [Concomitant]
     Active Substance: SEVOFLURANE
  3. EPOPROSTENOL ACT [Suspect]
     Active Substance: EPOPROSTENOL
     Dosage: 5.3 NG/KG, PER MIN
     Route: 042
  4. FENTANYL. [Concomitant]
     Active Substance: FENTANYL
  5. NORADRENALINE [Concomitant]
     Active Substance: NOREPINEPHRINE
  6. PRECEDEX [Concomitant]
     Active Substance: DEXMEDETOMIDINE HYDROCHLORIDE
  7. OPSUMIT [Suspect]
     Active Substance: MACITENTAN
     Indication: PULMONARY ARTERIAL HYPERTENSION
     Dosage: 10 MG
     Route: 048
  8. ATONIN [Concomitant]
     Dosage: 5 DF, QD
  9. TADALAFIL. [Concomitant]
     Active Substance: TADALAFIL
     Indication: PULMONARY ARTERIAL HYPERTENSION
     Dosage: 10 MG
  10. MIDAZOLAM [Concomitant]
     Active Substance: MIDAZOLAM HYDROCHLORIDE
  11. ROCURONIUM [Concomitant]
     Active Substance: ROCURONIUM BROMIDE

REACTIONS (9)
  - Exposure during pregnancy [Recovered/Resolved]
  - Caesarean section [Unknown]
  - Dyspnoea at rest [Unknown]
  - Premature delivery [Unknown]
  - Catheter placement [Unknown]
  - Hypoxia [Recovering/Resolving]
  - Phlebotomy [Unknown]
  - Pulmonary arterial hypertension [Recovering/Resolving]
  - Condition aggravated [Recovering/Resolving]
